FAERS Safety Report 18858307 (Version 1)
Quarter: 2021Q1

REPORT INFORMATION
  Report Type: Spontaneous
  Country: US (occurrence: US)
  Receive Date: 20210205
  Receipt Date: 20210205
  Transmission Date: 20210420
  Serious: No
  Sender: FDA-Public Use
  Company Number: None

PATIENT
  Age: 72 Year
  Sex: Male
  Weight: 71.1 kg

DRUGS (3)
  1. PREDNISOLONE. [Suspect]
     Active Substance: PREDNISOLONE
     Indication: CATARACT OPERATION
     Dosage: ?          QUANTITY:1 DROP(S);OTHER FREQUENCY:3/DWK1?2 2/DWK31/;?
     Route: 047
  2. OXOFLACIN [Concomitant]
  3. PROLENSA [Concomitant]
     Active Substance: BROMFENAC SODIUM

REACTIONS (3)
  - Nausea [None]
  - Dizziness [None]
  - Extra dose administered [None]

NARRATIVE: CASE EVENT DATE: 20210205
